FAERS Safety Report 4769932-9 (Version None)
Quarter: 2005Q3

REPORT INFORMATION
  Report Type: 
  Country: None (occurrence: None)
  Receive Date: 20050915
  Receipt Date: 20050909
  Transmission Date: 20060218
  Serious: Yes (Other)
  Sender: FDA-Public Use
  Company Number: PHNU2005DE03113

PATIENT
  Age: 51 Year
  Sex: Male

DRUGS (3)
  1. LOCOL [Suspect]
     Indication: TYPE IIA HYPERLIPIDAEMIA
     Dosage: 80 MG, QD
     Route: 048
     Dates: start: 20030101, end: 20040801
  2. LOCOL [Suspect]
     Dosage: 80 MG, QD
     Route: 048
     Dates: start: 20040801, end: 20050801
  3. LOCOL [Suspect]
     Dosage: 80 MG, QD
     Route: 048
     Dates: start: 20050801

REACTIONS (7)
  - ACIDOSIS [None]
  - ASTHENIA [None]
  - EXERCISE TOLERANCE DECREASED [None]
  - IMPAIRED GASTRIC EMPTYING [None]
  - MUSCLE SPASMS [None]
  - TACHYPNOEA [None]
  - VOMITING [None]
